FAERS Safety Report 6268554-0 (Version None)
Quarter: 2009Q3

REPORT INFORMATION
  Report Type: 
  Country: None (occurrence: None)
  Receive Date: 20090715
  Receipt Date: 20090707
  Transmission Date: 20100115
  Serious: Yes (Other)
  Sender: FDA-Public Use
  Company Number: JP-PFIZER INC-2009237708

PATIENT
  Age: 69 Year

DRUGS (11)
  1. MYCOBUTIN [Suspect]
     Dates: start: 20090420, end: 20090507
  2. SITAFLOXACIN [Suspect]
     Dates: start: 20090420, end: 20090507
  3. CLARITHROMYCIN [Concomitant]
     Dates: start: 20090420, end: 20090507
  4. GRIMAC (AZULENE SULFONATE SODIUM/L-GLUTAMINE) [Concomitant]
  5. BIOFERMIN-R (ANTIBIOTICS-RESISTANT LACTIC ACID BACTERIAE) [Concomitant]
  6. MUCOSTA (REBAMIPIDE) [Concomitant]
  7. CINAL (ASCORBIC ACID/CALCIUM PANTOTHENATE) [Concomitant]
  8. ADONA (CARBAZOCHROME SODIUM SULFONATE HYDRATE) [Concomitant]
  9. ROHYPNOL (FLUNITRAZEPAM) [Concomitant]
  10. BENOZIL (FLURAZEPAM HYDROCHLORIDE) [Concomitant]
  11. SEPAZON (CLOXAZOLAM) [Concomitant]

REACTIONS (1)
  - LIVER FUNCTION TEST ABNORMAL [None]
